FAERS Safety Report 19680696 (Version 1)
Quarter: 2021Q3

REPORT INFORMATION
  Report Type: Report from Study
  Country: CA (occurrence: CA)
  Receive Date: 20210810
  Receipt Date: 20210810
  Transmission Date: 20211014
  Serious: Yes (Death, Hospitalization, Other)
  Sender: FDA-Public Use
  Company Number: CA-PFIZER INC-202100992836

PATIENT
  Age: 74 Year
  Sex: Female

DRUGS (25)
  1. ATORVASTATIN CALCIUM. [Suspect]
     Active Substance: ATORVASTATIN CALCIUM
     Dosage: UNK, 1X/DAY
     Route: 048
  2. AMINO ACIDS NOS [Suspect]
     Active Substance: AMINO ACIDS, SOURCE UNSPECIFIED
     Dosage: UNK, 2X/DAY
     Route: 048
  3. ZOPICLONE [Suspect]
     Active Substance: ZOPICLONE
     Dosage: UNK, 1X/DAY
     Route: 048
  4. TOPIRAMATE. [Suspect]
     Active Substance: TOPIRAMATE
     Dosage: UNK, 1X/DAY
     Route: 048
  5. ACETAMINOPHEN AND CODEINE [Suspect]
     Active Substance: ACETAMINOPHEN\CODEINE PHOSPHATE
     Dosage: UNK
     Route: 048
  6. CLOZAPINE. [Suspect]
     Active Substance: CLOZAPINE
     Dosage: UNK, 1X/DAY
     Route: 048
  7. CLOZAPINE. [Suspect]
     Active Substance: CLOZAPINE
     Dosage: UNK
     Route: 065
  8. DILAUDID [Suspect]
     Active Substance: HYDROMORPHONE HYDROCHLORIDE
     Dosage: 1 EVERY 4 HOURS
     Route: 048
  9. NITROFURANTOIN. [Suspect]
     Active Substance: NITROFURANTOIN
     Dosage: UNK, 2X/DAY
     Route: 048
  10. MORPHINE SULFATE. [Suspect]
     Active Substance: MORPHINE SULFATE
     Dosage: UNK, 4X/DAY
     Route: 048
  11. ERGOCALCIFEROL. [Suspect]
     Active Substance: ERGOCALCIFEROL
     Dosage: UNK, 1X/DAY
     Route: 048
  12. BIOTIN;CALCIUM CARBONATE;CALCIUM PANTOTHENATE;COLECALCIFEROL;COPPER GL [MINERALS/VITAMINS] [Suspect]
     Active Substance: MINERALS\VITAMINS
     Dosage: UNK
     Route: 048
  13. BISACODYL. [Suspect]
     Active Substance: BISACODYL
     Dosage: UNK
     Route: 054
  14. CLOPIDOGREL BISULFATE. [Suspect]
     Active Substance: CLOPIDOGREL BISULFATE
     Dosage: UNK, 1X/DAY
     Route: 048
  15. IRON SULPHATE [Suspect]
     Active Substance: FERROUS SULFATE ANHYDROUS
     Dosage: UNK, 1X/DAY
     Route: 048
  16. SALBUTAMOL [Suspect]
     Active Substance: ALBUTEROL
     Dosage: UNK
     Route: 065
  17. SENNOSIDES. [Suspect]
     Active Substance: SENNOSIDES
     Dosage: UNK, 1X/DAY
     Route: 048
  18. AMLODIPINE BESILATE [Suspect]
     Active Substance: AMLODIPINE BESYLATE
     Dosage: UNK, 1X/DAY
     Route: 048
  19. IRBESARTAN. [Suspect]
     Active Substance: IRBESARTAN
     Dosage: UNK, 1X/DAY
     Route: 048
  20. OLOPATADINE HYDROCHLORIDE. [Suspect]
     Active Substance: OLOPATADINE HYDROCHLORIDE
     Dosage: UNK, 2X/DAY
     Route: 047
  21. CALCIUM CARBONATE. [Suspect]
     Active Substance: CALCIUM CARBONATE
     Dosage: UNK, 1X/DAY
     Route: 048
  22. HYDROXOCOBALAMIN ACETATE. [Suspect]
     Active Substance: HYDROXOCOBALAMIN ACETATE
     Dosage: UNK, 1X/DAY
     Route: 048
  23. METOPROLOL. [Suspect]
     Active Substance: METOPROLOL
     Dosage: UNK, 2X/DAY
     Route: 048
  24. PANTOPRAZOLE [Suspect]
     Active Substance: PANTOPRAZOLE
     Dosage: UNK
     Route: 048
  25. SYNTHROID [Suspect]
     Active Substance: LEVOTHYROXINE SODIUM
     Dosage: UNK, 1X/DAY
     Route: 048

REACTIONS (1)
  - Death [Fatal]
